FAERS Safety Report 14527589 (Version 2)
Quarter: 2018Q1

REPORT INFORMATION
  Report Type: Spontaneous
  Country: US (occurrence: US)
  Receive Date: 20180213
  Receipt Date: 20180327
  Transmission Date: 20180509
  Serious: No
  Sender: FDA-Public Use
  Company Number: US-PFIZER INC-2018063756

PATIENT
  Age: 79 Year
  Sex: Male
  Weight: 70 kg

DRUGS (1)
  1. ADVIL [Suspect]
     Active Substance: IBUPROFEN
     Indication: PAIN
     Dosage: 200 MG, ONCE A DAY AS NEEDED
     Route: 048

REACTIONS (3)
  - Malaise [Unknown]
  - Product commingling [Unknown]
  - Poor quality drug administered [Unknown]
